FAERS Safety Report 12235313 (Version 2)
Quarter: 2016Q2

REPORT INFORMATION
  Report Type: Report from Study
  Country: BR (occurrence: BR)
  Receive Date: 20160404
  Receipt Date: 20160526
  Transmission Date: 20160815
  Serious: Yes (Hospitalization, Other)
  Sender: FDA-Public Use
  Company Number: BR-ABBVIE-16P-020-1585038-00

PATIENT
  Age: 61 Year
  Sex: Male
  Weight: 65 kg

DRUGS (7)
  1. LIPIDIL [Suspect]
     Active Substance: FENOFIBRATE
     Indication: BLOOD TRIGLYCERIDES
     Route: 048
     Dates: start: 2009
  2. LIPITOR [Suspect]
     Active Substance: ATORVASTATIN CALCIUM
     Indication: BLOOD CHOLESTEROL
     Dosage: DAILY DOSE: 1 TABLET AT NIGHT
     Route: 048
     Dates: end: 201602
  3. LIPITOR [Suspect]
     Active Substance: ATORVASTATIN CALCIUM
     Indication: BLOOD TRIGLYCERIDES
     Route: 065
  4. POTABA [Suspect]
     Active Substance: AMINOBENZOATE POTASSIUM
     Indication: PEYRONIE^S DISEASE
     Route: 048
     Dates: start: 201504, end: 201510
  5. LIPIDIL [Suspect]
     Active Substance: FENOFIBRATE
     Route: 048
  6. VITAMIN E [Suspect]
     Active Substance: .ALPHA.-TOCOPHEROL
     Indication: PRODUCT USED FOR UNKNOWN INDICATION
     Route: 048
  7. LIPIDIL [Suspect]
     Active Substance: FENOFIBRATE
     Route: 048

REACTIONS (9)
  - Neuropathy peripheral [Unknown]
  - Urinary tract infection [Recovered/Resolved]
  - Neck surgery [Recovered/Resolved]
  - Blood triglycerides increased [Unknown]
  - Hepatomegaly [Not Recovered/Not Resolved]
  - Blood cholesterol increased [Not Recovered/Not Resolved]
  - Hepatic enzyme abnormal [Not Recovered/Not Resolved]
  - Weight decreased [Not Recovered/Not Resolved]
  - Hepatic cyst [Unknown]

NARRATIVE: CASE EVENT DATE: 20140904
